FAERS Safety Report 19164129 (Version 5)
Quarter: 2021Q4

REPORT INFORMATION
  Report Type: Spontaneous
  Country: US (occurrence: US)
  Receive Date: 20210421
  Receipt Date: 20211227
  Transmission Date: 20220303
  Serious: No
  Sender: FDA-Public Use
  Company Number: US-SANOFI-00555979

PATIENT
  Age: 75 Year
  Sex: Female

DRUGS (1)
  1. TOUJEO [Suspect]
     Active Substance: INSULIN GLARGINE
     Indication: Type 2 diabetes mellitus
     Dosage: 72 IU, QD
     Route: 065

REACTIONS (5)
  - COVID-19 [Unknown]
  - Blood glucose increased [Unknown]
  - Product quality issue [Unknown]
  - Therapeutic response decreased [Unknown]
  - Product storage error [Unknown]
